FAERS Safety Report 12384554 (Version 1)
Quarter: 2016Q2

REPORT INFORMATION
  Report Type: Report from Study
  Country: KE (occurrence: KE)
  Receive Date: 20160519
  Receipt Date: 20160519
  Transmission Date: 20160815
  Serious: Yes (Death, Other)
  Sender: FDA-Public Use
  Company Number: KE-SUN PHARMACEUTICAL INDUSTRIES LTD-2016R1-116736

PATIENT
  Age: 35 Year
  Sex: Female

DRUGS (6)
  1. MAREVAN [Interacting]
     Active Substance: WARFARIN SODIUM
     Indication: DEEP VEIN THROMBOSIS
     Dosage: UNK
     Route: 048
  2. COTRIMOXAZOLE [Suspect]
     Active Substance: SULFAMETHOXAZOLE\TRIMETHOPRIM
     Indication: ORAL CANDIDIASIS
     Dosage: UNK
     Route: 065
  3. STAVUDINE. [Interacting]
     Active Substance: STAVUDINE
     Indication: HIV INFECTION
     Dosage: UNK
     Route: 065
  4. EFAVIRENZ [Interacting]
     Active Substance: EFAVIRENZ
     Indication: HIV INFECTION
     Dosage: UNK
     Route: 065
  5. LAMIVUDINE. [Interacting]
     Active Substance: LAMIVUDINE
     Indication: HIV INFECTION
     Dosage: UNK
     Route: 065
  6. MAREVAN [Interacting]
     Active Substance: WARFARIN SODIUM
     Indication: PULMONARY EMBOLISM

REACTIONS (5)
  - International normalised ratio fluctuation [Recovered/Resolved]
  - Drug effect increased [Recovered/Resolved]
  - Pulmonary embolism [Fatal]
  - Potentiating drug interaction [Unknown]
  - Deep vein thrombosis [Unknown]
